FAERS Safety Report 6771345-5 (Version None)
Quarter: 2010Q2

REPORT INFORMATION
  Report Type: 
  Country: None (occurrence: None)
  Receive Date: 20100616
  Receipt Date: 20100607
  Transmission Date: 20101027
  Serious: Yes (Hospitalization, Other)
  Sender: FDA-Public Use
  Company Number: ES-BRISTOL-MYERS SQUIBB COMPANY-15137433

PATIENT
  Age: 34 Month
  Sex: Female

DRUGS (9)
  1. CISPLATIN [Suspect]
  2. CARBOPLATIN [Suspect]
  3. ETOPOSIDE [Suspect]
  4. CYCLOPHOSPHAMIDE [Suspect]
  5. VINCRISUL [Suspect]
     Indication: EPENDYMOMA MALIGNANT
     Dosage: 1.5MG/M2:ON DAYS 1,8,22 AND 29 0.05MG/KG: ON DAYS 15,22,36 AND 43.
     Route: 040
  6. METHOTREXATE [Suspect]
  7. CYTARABINE [Suspect]
  8. TRIMETHOPRIM + SULFAMETHOXAZOLE [Suspect]
  9. FILGRASTIM [Concomitant]

REACTIONS (2)
  - ARACHNOID CYST [None]
  - CONVULSION [None]
